FAERS Safety Report 8559998-2 (Version None)
Quarter: 2012Q3

REPORT INFORMATION
  Report Type: 
  Country: None (occurrence: None)
  Receive Date: 20120802
  Receipt Date: 20120730
  Transmission Date: 20120928
  Serious: Yes (Hospitalization, Other)
  Sender: FDA-Public Use
  Company Number: US-PFIZER INC-2012052348

PATIENT
  Sex: Male

DRUGS (9)
  1. GABAPENTIN [Concomitant]
     Indication: ARTHRALGIA
  2. CHANTIX [Suspect]
     Indication: SMOKING CESSATION THERAPY
     Dosage: STARTER PAK
     Dates: start: 20080501
  3. MOTRIN [Concomitant]
     Indication: BACK PAIN
     Dosage: 800 MG, UNK
  4. GABAPENTIN [Concomitant]
     Indication: BACK PAIN
     Dosage: UNK
  5. ETODOLAC [Concomitant]
     Indication: BACK PAIN
     Dosage: UNK
  6. MOTRIN [Concomitant]
     Indication: ARTHRALGIA
  7. WELLBUTRIN [Concomitant]
     Indication: DEPRESSION
     Dosage: UNK
  8. CHANTIX [Suspect]
     Dosage: MONTHLY MAINTENANCE PACK
     Dates: start: 20090101
  9. ETODOLAC [Concomitant]
     Indication: ARTHRALGIA

REACTIONS (3)
  - INTENTIONAL OVERDOSE [None]
  - DEPRESSION [None]
  - SUICIDE ATTEMPT [None]
